FAERS Safety Report 7924874-2 (Version None)
Quarter: 2011Q4

REPORT INFORMATION
  Report Type: 
  Country: None (occurrence: None)
  Receive Date: 20111118
  Receipt Date: 20110329
  Transmission Date: 20120403
  Serious: No
  Sender: FDA-Public Use
  Company Number: US-AMGEN-USASP2011016706

PATIENT
  Age: 63 Year
  Sex: Female

DRUGS (7)
  1. SULFASALAZINE [Concomitant]
  2. LISINOPRIL [Concomitant]
  3. ENBREL [Suspect]
     Indication: PSORIATIC ARTHROPATHY
     Dosage: 50 MG, QWK
     Dates: start: 20010101
  4. AMLODIPINE [Concomitant]
  5. CITALOPRAM HYDROBROMIDE [Concomitant]
  6. ARAVA [Concomitant]
  7. LIPITOR [Concomitant]

REACTIONS (5)
  - BACK INJURY [None]
  - HYPOAESTHESIA [None]
  - INCORRECT STORAGE OF DRUG [None]
  - HYPERHIDROSIS [None]
  - STRESS [None]
